FAERS Safety Report 7190593-6 (Version None)
Quarter: 2010Q4

REPORT INFORMATION
  Report Type: 
  Country: None (occurrence: None)
  Receive Date: 20101223
  Receipt Date: 20101221
  Transmission Date: 20110411
  Serious: Yes (Other)
  Sender: FDA-Public Use
  Company Number: US-B.I. PHARMACEUTICALS,INC./RIDGEFIELD-2010-BP-14743BP

PATIENT
  Age: 85 Year
  Sex: Female
  Weight: 62.1 kg

DRUGS (5)
  1. MICARDIS [Suspect]
     Dosage: 80 MG
  2. BENADRYL [Suspect]
     Indication: SLEEP DISORDER
     Route: 048
     Dates: start: 20091201, end: 20101201
  3. AMLODIPINE BESYLATE [Suspect]
     Indication: BLOOD PRESSURE
     Dosage: 10 MG
     Route: 048
  4. CARVEDILOL [Suspect]
     Indication: BLOOD PRESSURE
     Dosage: 6.25 MG
  5. ACETYLSALICYLIC ACID [Concomitant]
     Dosage: 81 MG

REACTIONS (3)
  - DIZZINESS [None]
  - FALL [None]
  - SYNCOPE [None]
